FAERS Safety Report 9414441 (Version 1)
Quarter: 2013Q3

REPORT INFORMATION
  Report Type: Spontaneous
  Country: US (occurrence: US)
  Receive Date: 20130723
  Receipt Date: 20130723
  Transmission Date: 20140515
  Serious: No
  Sender: FDA-Public Use
  Company Number: US-TEVA-400014USA

PATIENT
  Sex: Female

DRUGS (5)
  1. GABITRIL [Suspect]
  2. DILANTIN [Concomitant]
     Dosage: 60 MILLIGRAM DAILY;
     Route: 048
  3. DILANTIN [Concomitant]
     Dosage: 500 MILLIGRAM DAILY; 5 PER DAY
  4. LYRICA [Concomitant]
     Dosage: 225 MILLIGRAM DAILY;
     Route: 048
  5. DIAZEPAM [Concomitant]

REACTIONS (1)
  - Drug hypersensitivity [Unknown]
